FAERS Safety Report 11991619 (Version 1)
Quarter: 2016Q1

REPORT INFORMATION
  Report Type: Spontaneous
  Country: US (occurrence: US)
  Receive Date: 20160203
  Receipt Date: 20160203
  Transmission Date: 20160526
  Serious: No
  Sender: FDA-Public Use
  Company Number: US-JNJFOC-20160115374

PATIENT

DRUGS (1)
  1. HALOPERIDOL. [Suspect]
     Active Substance: HALOPERIDOL
     Indication: SCHIZOPHRENIA
     Route: 065

REACTIONS (16)
  - Sedation [Unknown]
  - Insomnia [Unknown]
  - Extrapyramidal disorder [Unknown]
  - Somnolence [Unknown]
  - Dystonia [Unknown]
  - Nausea [Unknown]
  - Constipation [Unknown]
  - Akathisia [Unknown]
  - Agitation [Unknown]
  - Drug ineffective [Unknown]
  - Dyspepsia [Unknown]
  - Fatigue [Unknown]
  - Weight increased [Unknown]
  - Headache [Unknown]
  - Vomiting [Unknown]
  - Blood prolactin increased [Unknown]
